FAERS Safety Report 5730295-3 (Version None)
Quarter: 2008Q2

REPORT INFORMATION
  Report Type: 
  Country: None (occurrence: None)
  Receive Date: 20080505
  Receipt Date: 20080505
  Transmission Date: 20081010
  Serious: No
  Sender: FDA-Public Use
  Company Number: None

PATIENT
  Age: 43 Year
  Sex: Female
  Weight: 52.1637 kg

DRUGS (2)
  1. SINGULAIR [Suspect]
     Indication: BREAST DISORDER
     Dosage: 1 TABLET AT BEDTIME PO
     Route: 048
     Dates: start: 20080410, end: 20080510
  2. SINGULAIR [Suspect]
     Indication: OFF LABEL USE
     Dosage: 1 TABLET AT BEDTIME PO
     Route: 048
     Dates: start: 20080410, end: 20080510

REACTIONS (5)
  - DEPRESSION [None]
  - OFF LABEL USE [None]
  - PRURITUS [None]
  - SELF ESTEEM DECREASED [None]
  - SUICIDAL IDEATION [None]
